FAERS Safety Report 5837042-5 (Version None)
Quarter: 2008Q3

REPORT INFORMATION
  Report Type: 
  Country: None (occurrence: None)
  Receive Date: 20080807
  Receipt Date: 20080625
  Transmission Date: 20090109
  Serious: No
  Sender: FDA-Public Use
  Company Number: US-BRISTOL-MYERS SQUIBB COMPANY-14241145

PATIENT
  Sex: Female

DRUGS (2)
  1. METFORMIN HCL [Suspect]
     Indication: TYPE 2 DIABETES MELLITUS
  2. GLUCOVANCE [Suspect]
     Indication: TYPE 2 DIABETES MELLITUS

REACTIONS (1)
  - DRUG INEFFECTIVE [None]
